FAERS Safety Report 4301911-8 (Version None)
Quarter: 2004Q1

REPORT INFORMATION
  Report Type: 
  Country: None (occurrence: None)
  Receive Date: 20040220
  Receipt Date: 20040209
  Transmission Date: 20041129
  Serious: Yes (Other)
  Sender: FDA-Public Use
  Company Number: 2004198344DE

PATIENT
  Age: 9 Year
  Sex: Female

DRUGS (4)
  1. VINCRISTINE [Suspect]
     Indication: EWING'S SARCOMA
     Dosage: CYCLIC, IV
     Route: 042
  2. ADRIAMYCIN PFS [Suspect]
     Indication: EWING'S SARCOMA
     Dosage: CYCLIC, IV
  3. CYCLOPHOSPHAMIDE [Suspect]
     Indication: EWING'S SARCOMA
     Dosage: CYCLIC , IV
     Route: 042
  4. DACTINOMYCIN [Suspect]
     Indication: EWING'S SARCOMA
     Dosage: CYCLIC, IV
     Route: 042

REACTIONS (13)
  - ALOPECIA [None]
  - BONE DENSITY DECREASED [None]
  - DRUG TOXICITY [None]
  - EPIDERMOLYSIS [None]
  - INFECTION [None]
  - LUNG DISORDER [None]
  - METASTASES TO BONE [None]
  - METASTASES TO PLEURA [None]
  - MUCOSAL INFLAMMATION [None]
  - PNEUMOTHORAX [None]
  - RECURRENT CANCER [None]
  - RENAL TUBULAR DISORDER [None]
  - WHITE BLOOD CELL COUNT DECREASED [None]
